FAERS Safety Report 8725582 (Version 3)
Quarter: 2012Q4

REPORT INFORMATION
  Report Type: Report from Study
  Country: DE (occurrence: ES)
  Receive Date: 20120815
  Receipt Date: 20121025
  Transmission Date: 20130627
  Serious: Yes (Death, Other)
  Sender: FDA-Public Use
  Company Number: ES-BRISTOL-MYERS SQUIBB COMPANY-16856361

PATIENT
  Age: 80 Year
  Sex: Male

DRUGS (16)
  1. BELATACEPT [Suspect]
     Indication: RENAL TRANSPLANT
     Route: 042
     Dates: start: 20060728, end: 20120726
  2. BASILIXIMAB [Suspect]
     Indication: RENAL TRANSPLANT
     Dates: start: 20060728, end: 20060801
  3. MYCOPHENOLATE MOFETIL [Suspect]
     Indication: RENAL TRANSPLANT
     Dates: start: 20060728, end: 20120913
  4. STEROIDS [Suspect]
     Indication: RENAL TRANSPLANT
     Dates: start: 20060728, end: 20120913
  5. FUROSEMIDE [Concomitant]
     Dates: start: 20070627
  6. LOSARTAN [Concomitant]
     Dates: start: 20060818
  7. DOXAZOSIN [Concomitant]
     Dates: start: 20100921
  8. AMLODIPINE [Concomitant]
     Dates: start: 20070925
  9. DARBEPOETIN ALFA [Concomitant]
     Dates: start: 20100923
  10. ATORVASTATIN [Concomitant]
     Dates: start: 20100830
  11. CALCIUM CARBONATE [Concomitant]
     Dates: start: 20060731
  12. CALCITRIOL [Concomitant]
     Dates: start: 20060804
  13. SALICYLATE [Concomitant]
     Dates: start: 20070726
  14. VITAMIN B1 [Concomitant]
     Dates: start: 20060807
  15. PANTOPRAZOLE [Concomitant]
     Dates: start: 20060831
  16. TACROLIMUS [Concomitant]
     Dates: start: 20110829, end: 20120913

REACTIONS (2)
  - Cardiac arrest [Fatal]
  - Lung cancer metastatic [Fatal]
